FAERS Safety Report 7396101-9 (Version None)
Quarter: 2011Q2

REPORT INFORMATION
  Report Type: 
  Country: None (occurrence: None)
  Receive Date: 20110406
  Receipt Date: 20081001
  Transmission Date: 20111010
  Serious: Yes (Hospitalization, Other)
  Sender: FDA-Public Use
  Company Number: US-BAYER-201040352NA

PATIENT
  Sex: Male
  Weight: 97.052 kg

DRUGS (41)
  1. TRASYLOL [Suspect]
     Indication: CORONARY ARTERY BYPASS
     Dosage: 1ML INITIAL (TEST) DOSE
     Route: 042
     Dates: start: 20060912, end: 20060912
  2. CLIMARA [Concomitant]
     Route: 062
  3. NAPROSYN [Concomitant]
     Dosage: 50 MG, BID
     Route: 048
     Dates: start: 20050124
  4. BACITRACIN [Concomitant]
     Dosage: 25000 U, UNK
     Route: 061
     Dates: start: 20060912
  5. PROTAMINE SULFATE [Concomitant]
     Dosage: 250 MG, UNK
     Route: 042
     Dates: start: 20060912
  6. DOPAMINE HCL [Concomitant]
     Dosage: 5MG/KG/MIN
     Route: 042
     Dates: start: 20060912
  7. GLUCOPHAGE [Concomitant]
     Dosage: UNK
     Route: 048
     Dates: start: 19920601
  8. LOTENSIN [Concomitant]
     Dosage: 5-40MG DAILY LONG TERM
     Route: 048
  9. ACETYLSALICYLIC ACID SRT [Concomitant]
     Dosage: 325 MG, QD
     Route: 048
     Dates: start: 20040601
  10. METOPROLOL [Concomitant]
     Dosage: UNK
     Dates: start: 20060401
  11. LASIX [Concomitant]
     Dosage: 40 MG, QD
     Route: 048
  12. SIMVASTATIN [Concomitant]
     Dosage: 40 MG, QD
     Route: 048
  13. NOVOLOG [Concomitant]
     Dosage: 5 UNITS BEFORE EACH MEAL
     Route: 058
  14. FLUOXETINE [Concomitant]
     Dosage: 20 MG, QD
     Route: 048
  15. VANCOMYCIN [Concomitant]
     Dosage: 1 GRAM VIAL
     Route: 042
     Dates: start: 20060912
  16. CEFAZOLIN [Concomitant]
  17. MILRINONE [Concomitant]
     Dosage: UNK
     Route: 042
     Dates: start: 20060912
  18. NOREPINEPHRINE BITARTRATE [Concomitant]
     Dosage: UNK
     Route: 042
     Dates: start: 20060912
  19. RED BLOOD CELLS [Concomitant]
     Dosage: 4 U, UNK
     Route: 042
     Dates: start: 20060912
  20. CEFAZOLIN [Concomitant]
     Dosage: 1 G, TID
     Route: 042
     Dates: start: 20060912
  21. MANNITOL [Concomitant]
     Dosage: 37.5 G, UNK
     Route: 042
     Dates: start: 20060912
  22. RED BLOOD CELLS [Concomitant]
     Dosage: 2 UNITS
     Route: 042
     Dates: start: 20060914
  23. LOVENOX [Concomitant]
     Dosage: 30 MG, UNK
     Route: 058
  24. PAPAVERINE [Concomitant]
     Dosage: 60 MG, UNK
     Route: 061
     Dates: start: 20060912
  25. RED BLOOD CELLS [Concomitant]
     Dosage: 3 UNITS
     Route: 042
     Dates: start: 20060913
  26. TRASYLOL [Suspect]
     Dosage: 100 ML PRIME (LOADING DOSE) FOLLOWED BY INFUSION
     Route: 042
     Dates: start: 20060912, end: 20060912
  27. NORVASC [Concomitant]
     Dosage: 5 MG, QD
     Route: 048
  28. GLYBURIDE [Concomitant]
     Dosage: 10MG EVERY AM AND 5 MG EVERY EVENING
     Route: 048
  29. ZOLOFT [Concomitant]
     Dosage: 200 MG, QD
     Route: 048
  30. FENTANYL [Concomitant]
     Dosage: UNK
     Route: 042
     Dates: start: 20060912
  31. LEVOPHED [Concomitant]
     Dosage: 10 MCG/KG/MIN
     Route: 042
     Dates: start: 20060912
  32. OMNIPAQUE 140 [Concomitant]
     Indication: CATHETERISATION CARDIAC
     Dosage: 83 CC
     Dates: start: 20060911, end: 20060911
  33. ACTOS [Concomitant]
     Dosage: 30 MG, QD
     Route: 048
  34. GLUCOPHAGE [Concomitant]
     Dosage: 500 MG 3 TIMES A DAY - 1000 TWICE A DAY
     Route: 048
  35. LANTUS [Concomitant]
     Dosage: 15 UNITS BEFORE BREAKFAST
     Route: 058
     Dates: start: 20060501
  36. METOPROLOL [Concomitant]
     Dosage: 25 MG, BID
     Route: 048
     Dates: start: 20060910
  37. LASIX [Concomitant]
     Dosage: 160 MG, TID
     Route: 048
     Dates: start: 20060914
  38. HEPARIN SODIUM [Concomitant]
     Dosage: 50000 U, UNK
     Route: 042
     Dates: start: 20060912
  39. INSULIN HUMAN [Concomitant]
     Dosage: UNK
     Route: 042
     Dates: start: 20060912
  40. INDOCYANINE GREEN [Concomitant]
     Dosage: 25 MG, UNK
     Route: 042
     Dates: start: 20060912
  41. AVASTIN [Concomitant]
     Indication: RETINOPATHY PROLIFERATIVE

REACTIONS (12)
  - RENAL INJURY [None]
  - ANXIETY [None]
  - PAIN [None]
  - EMOTIONAL DISTRESS [None]
  - ANAEMIA [None]
  - RENAL IMPAIRMENT [None]
  - STRESS [None]
  - FEAR [None]
  - DEPRESSION [None]
  - UNEVALUABLE EVENT [None]
  - RENAL FAILURE [None]
  - INJURY [None]
